FAERS Safety Report 12798547 (Version 1)
Quarter: 2016Q3

REPORT INFORMATION
  Report Type: Report from Study
  Country: CA (occurrence: CA)
  Receive Date: 20160930
  Receipt Date: 20160930
  Transmission Date: 20161109
  Serious: Yes (Hospitalization)
  Sender: FDA-Public Use
  Company Number: CA-OTSUKA-2016_022158

PATIENT
  Age: 41 Year
  Sex: Male

DRUGS (9)
  1. LOXAPINE. [Concomitant]
     Active Substance: LOXAPINE
     Indication: SCHIZOPHRENIA
     Dosage: PER OZ
     Route: 048
     Dates: start: 20160419, end: 20160510
  2. FLUPENTHIXOL 10% [Concomitant]
     Dosage: 70 MG, BIW
     Route: 030
     Dates: start: 20160617
  3. EPIVAL [Concomitant]
     Active Substance: DIVALPROEX SODIUM
     Dosage: 2000 MG, QD
     Route: 065
     Dates: start: 20160708
  4. COGENTIN [Concomitant]
     Active Substance: BENZTROPINE MESYLATE
     Indication: EXTRAPYRAMIDAL DISORDER
     Dosage: PER OZ
     Route: 048
     Dates: start: 20160711, end: 20160715
  5. EPIVAL [Concomitant]
     Active Substance: DIVALPROEX SODIUM
     Dosage: 1750 MG, QD
     Route: 065
     Dates: start: 20160617, end: 20160708
  6. EPIVAL [Concomitant]
     Active Substance: DIVALPROEX SODIUM
     Indication: HYPOMANIA
     Dosage: 1000 MG, QD
     Route: 065
     Dates: start: 20160511, end: 20160609
  7. EPIVAL [Concomitant]
     Active Substance: DIVALPROEX SODIUM
     Dosage: 1250 MG, QD
     Route: 065
     Dates: start: 20160609, end: 20160617
  8. ABILIFY MAINTENA [Suspect]
     Active Substance: ARIPIPRAZOLE
     Indication: SCHIZOPHRENIA
     Dosage: 400 MG, QD
     Route: 030
     Dates: start: 20151204, end: 20160510
  9. FLUPENTHIXOL 10% [Concomitant]
     Indication: SCHIZOPHRENIA
     Dosage: 50 MG, BIW
     Route: 030
     Dates: start: 20160524, end: 20160617

REACTIONS (2)
  - Hospitalisation [Recovered/Resolved]
  - Hospitalisation [Unknown]

NARRATIVE: CASE EVENT DATE: 20160422
